FAERS Safety Report 4955351-9 (Version None)
Quarter: 2006Q1

REPORT INFORMATION
  Report Type: 
  Country: None (occurrence: None)
  Receive Date: 20060328
  Receipt Date: 20051207
  Transmission Date: 20060701
  Serious: Yes (Hospitalization, Other)
  Sender: FDA-Public Use
  Company Number: PHBS2005JP18166

PATIENT
  Age: 4 Year
  Sex: Male

DRUGS (9)
  1. CELLCEPT [Suspect]
     Indication: HEART TRANSPLANT
     Dosage: 100 MG/D
     Route: 048
     Dates: start: 20040317, end: 20041017
  2. CELLCEPT [Suspect]
     Dosage: 50 MG/D
     Route: 048
     Dates: start: 20041018, end: 20041021
  3. CELLCEPT [Suspect]
     Dosage: 50 MG/D
     Route: 048
     Dates: start: 20041115, end: 20041124
  4. CELLCEPT [Suspect]
     Dosage: 50 MG/D
     Route: 048
     Dates: start: 20031126, end: 20040316
  5. AZATHIOPRINE [Suspect]
     Indication: HEART TRANSPLANT
     Dosage: 6 MG/D
     Route: 048
     Dates: start: 20030526, end: 20030625
  6. AZATHIOPRINE [Suspect]
     Dosage: 4 MG/D
     Route: 048
     Dates: start: 20030626, end: 20030703
  7. AZATHIOPRINE [Suspect]
     Dosage: 3 MG/D
     Route: 048
     Dates: start: 20030704, end: 20030711
  8. AZATHIOPRINE [Suspect]
     Dosage: 3 MG/D
     Route: 048
     Dates: start: 20030821, end: 20030903
  9. NEORAL [Suspect]
     Indication: HEART TRANSPLANT
     Dosage: 27-75 MG/D
     Route: 048
     Dates: start: 20030526, end: 20050117

REACTIONS (11)
  - ABDOMINAL DISCOMFORT [None]
  - ABDOMINAL MASS [None]
  - BLOOD LACTATE DEHYDROGENASE INCREASED [None]
  - BURKITT'S LYMPHOMA [None]
  - C-REACTIVE PROTEIN INCREASED [None]
  - CYTOMEGALOVIRUS INFECTION [None]
  - EPSTEIN-BARR VIRUS INFECTION [None]
  - LEUKOPENIA [None]
  - MOROSE [None]
  - TONSILLITIS [None]
  - WHITE BLOOD CELL COUNT INCREASED [None]
